FAERS Safety Report 16862419 (Version 2)
Quarter: 2019Q4

REPORT INFORMATION
  Report Type: Spontaneous
  Country: CO (occurrence: CO)
  Receive Date: 20190927
  Receipt Date: 20191017
  Transmission Date: 20200122
  Serious: Yes (Other)
  Sender: FDA-Public Use
  Company Number: CO-AUROBINDO-AUR-APL-2019-061571

PATIENT
  Age: 80 Year
  Sex: Male

DRUGS (115)
  1. PIPERACILLIN AND TAZOBACTAM [Suspect]
     Active Substance: PIPERACILLIN SODIUM\TAZOBACTAM SODIUM
     Dosage: 4.5 GRAM (EVERY 6 HOURS)
     Route: 042
     Dates: start: 20190714
  2. PIPERACILLIN AND TAZOBACTAM [Suspect]
     Active Substance: PIPERACILLIN SODIUM\TAZOBACTAM SODIUM
     Dosage: 4.5 GRAM (EVERY 6 HOURS)
     Route: 042
     Dates: start: 20190715
  3. PIPERACILLIN AND TAZOBACTAM [Suspect]
     Active Substance: PIPERACILLIN SODIUM\TAZOBACTAM SODIUM
     Dosage: 4.5 GRAM (EVERY 6 HOURS)
     Route: 042
     Dates: start: 20190716
  4. PIPERACILLIN AND TAZOBACTAM [Suspect]
     Active Substance: PIPERACILLIN SODIUM\TAZOBACTAM SODIUM
     Dosage: 4.5 GRAM (EVERY 6 HOURS)
     Route: 042
     Dates: start: 20190716
  5. PIPERACILLIN AND TAZOBACTAM [Suspect]
     Active Substance: PIPERACILLIN SODIUM\TAZOBACTAM SODIUM
     Dosage: 2.5 GRAM (EVERY 6 HOURS)
     Route: 042
     Dates: start: 20190717
  6. PIPERACILLIN AND TAZOBACTAM [Suspect]
     Active Substance: PIPERACILLIN SODIUM\TAZOBACTAM SODIUM
     Dosage: 2.5 GRAM (EVERY 6 HOURS)
     Route: 042
     Dates: start: 20190718
  7. PIPERACILLIN AND TAZOBACTAM [Suspect]
     Active Substance: PIPERACILLIN SODIUM\TAZOBACTAM SODIUM
     Dosage: 2.5 GRAM (EVERY 6 HOURS)
     Route: 042
     Dates: start: 20190721
  8. PIPERACILLIN AND TAZOBACTAM [Suspect]
     Active Substance: PIPERACILLIN SODIUM\TAZOBACTAM SODIUM
     Dosage: 2.5 GRAM (EVERY 6 HOURS)
     Route: 042
     Dates: start: 20190721
  9. CAPTOPRIL. [Concomitant]
     Active Substance: CAPTOPRIL
     Indication: PRODUCT USED FOR UNKNOWN INDICATION
     Dosage: 25 MILLIGRAM, SINGLE DOSE
     Route: 048
     Dates: start: 20190712, end: 20190712
  10. MIDAZOLAM [Concomitant]
     Active Substance: MIDAZOLAM HYDROCHLORIDE
     Dosage: 150 MILLIGRAM, TWO TIMES A DAY
     Route: 042
     Dates: start: 20190717, end: 20190717
  11. MIDAZOLAM [Concomitant]
     Active Substance: MIDAZOLAM HYDROCHLORIDE
     Dosage: 150 MILLIGRAM, 3 TIMES A DAY
     Route: 042
     Dates: start: 20190722, end: 20190724
  12. OMEPRAZOLE. [Concomitant]
     Active Substance: OMEPRAZOLE
     Dosage: 40 MILLIGRAM, ONCE A DAY
     Route: 042
     Dates: start: 20190714
  13. OMEPRAZOLE. [Concomitant]
     Active Substance: OMEPRAZOLE
     Dosage: 40 MILLIGRAM, ONCE A DAY
     Route: 042
     Dates: start: 20190719
  14. OMEPRAZOLE. [Concomitant]
     Active Substance: OMEPRAZOLE
     Dosage: 40 MILLIGRAM, ONCE A DAY
     Route: 042
     Dates: start: 20190723
  15. OMEPRAZOLE. [Concomitant]
     Active Substance: OMEPRAZOLE
     Dosage: 40 MILLIGRAM, ONCE A DAY
     Route: 042
     Dates: start: 20190724
  16. N ACETYL CYSTEIN [Concomitant]
     Indication: RENAL DISORDER PROPHYLAXIS
     Dosage: 600 MILLIGRAM, 3 TIMES A DAY
     Route: 042
     Dates: start: 20190715
  17. N ACETYL CYSTEIN [Concomitant]
     Dosage: 600 MILLIGRAM, 3 TIMES A DAY
     Route: 042
     Dates: start: 20190715, end: 20190715
  18. VECURONIUM BROMIDE. [Concomitant]
     Active Substance: VECURONIUM BROMIDE
     Indication: PRODUCT USED FOR UNKNOWN INDICATION
     Dosage: 6 MILLIGRAM, SINGLE DOSE
     Route: 042
     Dates: start: 20190719, end: 20190719
  19. METOCLOPRAMIDE. [Concomitant]
     Active Substance: METOCLOPRAMIDE
     Dosage: 10 MILLIGRAM, 3 TIMES A DAY
     Route: 042
     Dates: start: 20190722, end: 20190728
  20. DEXMEDETOMIDINE. [Concomitant]
     Active Substance: DEXMEDETOMIDINE
     Dosage: 400 MICROGRAM, TWO TIMES A DAY
     Route: 042
     Dates: start: 20190724
  21. ACETAMINOPHEN. [Concomitant]
     Active Substance: ACETAMINOPHEN
     Dosage: 1 GRAM, FOUR TIMES/DAY
     Route: 048
     Dates: start: 20190726
  22. ACETAMINOPHEN. [Concomitant]
     Active Substance: ACETAMINOPHEN
     Dosage: 1 GRAM, FOUR TIMES/DAY
     Route: 048
     Dates: start: 20190726
  23. PIPERACILLIN AND TAZOBACTAM [Suspect]
     Active Substance: PIPERACILLIN SODIUM\TAZOBACTAM SODIUM
     Dosage: 4.5 GRAM (EVERY 6 HOURS)
     Route: 042
     Dates: start: 20190715
  24. PIPERACILLIN AND TAZOBACTAM [Suspect]
     Active Substance: PIPERACILLIN SODIUM\TAZOBACTAM SODIUM
     Dosage: 2.5 GRAM (EVERY 6 HOURS)
     Route: 042
     Dates: start: 20190719
  25. PIPERACILLIN AND TAZOBACTAM [Suspect]
     Active Substance: PIPERACILLIN SODIUM\TAZOBACTAM SODIUM
     Dosage: 2.5 GRAM (EVERY 6 HOURS)
     Route: 042
     Dates: start: 20190724
  26. PIPERACILLIN AND TAZOBACTAM [Suspect]
     Active Substance: PIPERACILLIN SODIUM\TAZOBACTAM SODIUM
     Dosage: 2.5 GRAM (EVERY 6 HOURS)
     Route: 042
     Dates: start: 20190724
  27. OMEPRAZOLE. [Concomitant]
     Active Substance: OMEPRAZOLE
     Dosage: 40 MILLIGRAM, ONCE A DAY
     Route: 042
     Dates: start: 20190717
  28. HEPARIN SODIUM. [Concomitant]
     Active Substance: HEPARIN SODIUM
     Dosage: 40 MILLIGRAM, ONCE A DAY
     Route: 058
     Dates: start: 20190716, end: 20190717
  29. AMIODARONE [Concomitant]
     Active Substance: AMIODARONE
     Indication: PRODUCT USED FOR UNKNOWN INDICATION
     Dosage: 300 MILLIGRAM, SINGLE DOSE
     Route: 042
     Dates: start: 20190714, end: 20190714
  30. METOCLOPRAMIDE. [Concomitant]
     Active Substance: METOCLOPRAMIDE
     Dosage: 10 MILLIGRAM, 3 TIMES A DAY
     Route: 042
     Dates: start: 20190724
  31. DEXMEDETOMIDINE. [Concomitant]
     Active Substance: DEXMEDETOMIDINE
     Indication: PRODUCT USED FOR UNKNOWN INDICATION
     Dosage: 400 MICROGRAM, TWO TIMES A DAY
     Route: 042
     Dates: start: 20190723
  32. ACETAMINOPHEN. [Concomitant]
     Active Substance: ACETAMINOPHEN
     Indication: PRODUCT USED FOR UNKNOWN INDICATION
     Dosage: 1 GRAM, FOUR TIMES/DAY
     Route: 048
     Dates: start: 20190725
  33. PIPERACILLIN AND TAZOBACTAM [Suspect]
     Active Substance: PIPERACILLIN SODIUM\TAZOBACTAM SODIUM
     Dosage: 2.5 GRAM (EVERY 6 HOURS)
     Route: 042
     Dates: start: 20190718
  34. PIPERACILLIN AND TAZOBACTAM [Suspect]
     Active Substance: PIPERACILLIN SODIUM\TAZOBACTAM SODIUM
     Dosage: 2.5 GRAM (EVERY 6 HOURS)
     Route: 042
     Dates: start: 20190720
  35. PIPERACILLIN AND TAZOBACTAM [Suspect]
     Active Substance: PIPERACILLIN SODIUM\TAZOBACTAM SODIUM
     Dosage: 2.5 GRAM (EVERY 6 HOURS)
     Route: 042
     Dates: start: 20190723
  36. PHENYTOIN. [Concomitant]
     Active Substance: PHENYTOIN
     Indication: PRODUCT USED FOR UNKNOWN INDICATION
     Dosage: 1 GRAM, SINGLE DOSE (4 AMPOULES IN 250 ML, ADMINISTRATION IN 1 HOUR)
     Route: 042
     Dates: start: 20190712, end: 20190712
  37. MIDAZOLAM [Concomitant]
     Active Substance: MIDAZOLAM HYDROCHLORIDE
     Dosage: 150 MILLIGRAM, 3 TIMES A DAY
     Route: 042
     Dates: start: 20190720
  38. HEPARIN SODIUM. [Concomitant]
     Active Substance: HEPARIN SODIUM
     Dosage: 40 MILLIGRAM, ONCE A DAY
     Route: 058
     Dates: start: 20190720
  39. FUROSEMIDE. [Concomitant]
     Active Substance: FUROSEMIDE
     Indication: PRODUCT USED FOR UNKNOWN INDICATION
     Dosage: 60 MILLIGRAM, SINGLE DOSE
     Route: 042
     Dates: start: 20190714, end: 20190715
  40. FUROSEMIDE. [Concomitant]
     Active Substance: FUROSEMIDE
     Dosage: 60 MILLIGRAM, ONCE A DAY
     Route: 042
     Dates: start: 20190715
  41. ETOMIDATE LIPURO [Concomitant]
     Active Substance: ETOMIDATE
     Indication: PRODUCT USED FOR UNKNOWN INDICATION
     Dosage: 10 MILLILITER, SINGLE DOSE
     Route: 042
     Dates: start: 20190718, end: 20190718
  42. METOCLOPRAMIDE. [Concomitant]
     Active Substance: METOCLOPRAMIDE
     Dosage: 10 MILLIGRAM, 3 TIMES A DAY
     Route: 042
     Dates: start: 20190724
  43. METOCLOPRAMIDE. [Concomitant]
     Active Substance: METOCLOPRAMIDE
     Dosage: 10 MILLIGRAM, 3 TIMES A DAY
     Route: 042
     Dates: start: 20190725
  44. DEXMEDETOMIDINE. [Concomitant]
     Active Substance: DEXMEDETOMIDINE
     Dosage: 400 MICROGRAM, TWO TIMES A DAY
     Route: 042
     Dates: start: 20190724, end: 20190724
  45. PIPERACILLIN AND TAZOBACTAM [Suspect]
     Active Substance: PIPERACILLIN SODIUM\TAZOBACTAM SODIUM
     Dosage: 4.5 GRAM (EVERY 6 HOURS)
     Route: 042
     Dates: start: 20190715
  46. PIPERACILLIN AND TAZOBACTAM [Suspect]
     Active Substance: PIPERACILLIN SODIUM\TAZOBACTAM SODIUM
     Dosage: 2.5 GRAM (EVERY 6 HOURS)
     Route: 042
     Dates: start: 20190717
  47. PIPERACILLIN AND TAZOBACTAM [Suspect]
     Active Substance: PIPERACILLIN SODIUM\TAZOBACTAM SODIUM
     Dosage: 2.5 GRAM (EVERY 6 HOURS)
     Route: 042
     Dates: start: 20190717
  48. PIPERACILLIN AND TAZOBACTAM [Suspect]
     Active Substance: PIPERACILLIN SODIUM\TAZOBACTAM SODIUM
     Dosage: 2.5 GRAM (EVERY 6 HOURS)
     Route: 042
     Dates: start: 20190717
  49. PIPERACILLIN AND TAZOBACTAM [Suspect]
     Active Substance: PIPERACILLIN SODIUM\TAZOBACTAM SODIUM
     Dosage: 2.5 GRAM (EVERY 6 HOURS)
     Route: 042
     Dates: start: 20190719
  50. PIPERACILLIN AND TAZOBACTAM [Suspect]
     Active Substance: PIPERACILLIN SODIUM\TAZOBACTAM SODIUM
     Dosage: 2.5 GRAM (EVERY 6 HOURS)
     Route: 042
     Dates: start: 20190722
  51. PIPERACILLIN AND TAZOBACTAM [Suspect]
     Active Substance: PIPERACILLIN SODIUM\TAZOBACTAM SODIUM
     Dosage: 2.5 GRAM (EVERY 6 HOURS)
     Route: 042
     Dates: start: 20190723
  52. MIDAZOLAM [Concomitant]
     Active Substance: MIDAZOLAM HYDROCHLORIDE
     Indication: PRODUCT USED FOR UNKNOWN INDICATION
     Dosage: 5 MILLIGRAM, SINGLE DOSE
     Route: 042
     Dates: start: 20190712, end: 20190712
  53. MIDAZOLAM [Concomitant]
     Active Substance: MIDAZOLAM HYDROCHLORIDE
     Dosage: 150 MILLIGRAM, TWO TIMES A DAY
     Route: 042
     Dates: start: 20190713, end: 20190713
  54. MIDAZOLAM [Concomitant]
     Active Substance: MIDAZOLAM HYDROCHLORIDE
     Dosage: 150 MILLIGRAM, TWO TIMES A DAY
     Route: 042
     Dates: start: 20190715, end: 20190715
  55. MIDAZOLAM [Concomitant]
     Active Substance: MIDAZOLAM HYDROCHLORIDE
     Dosage: 150 MILLIGRAM, TWO TIMES A DAY
     Route: 042
     Dates: start: 20190725, end: 20190728
  56. OMEPRAZOLE. [Concomitant]
     Active Substance: OMEPRAZOLE
     Dosage: 40 MILLIGRAM, ONCE A DAY
     Route: 042
     Dates: start: 20190725, end: 20190728
  57. HEPARIN SODIUM. [Concomitant]
     Active Substance: HEPARIN SODIUM
     Dosage: 40 MILLIGRAM, ONCE A DAY
     Route: 058
     Dates: start: 20190713
  58. HEPARIN SODIUM. [Concomitant]
     Active Substance: HEPARIN SODIUM
     Dosage: 40 MILLIGRAM, ONCE A DAY
     Route: 058
     Dates: start: 20190721
  59. FUROSEMIDE. [Concomitant]
     Active Substance: FUROSEMIDE
     Dosage: 10 MILLIGRAM, ONCE A DAY
     Route: 042
     Dates: start: 20190718, end: 20190718
  60. PIPERACILLIN AND TAZOBACTAM [Suspect]
     Active Substance: PIPERACILLIN SODIUM\TAZOBACTAM SODIUM
     Dosage: 4.5 GRAM (EVERY 6 HOURS)
     Route: 042
     Dates: start: 20190714
  61. PIPERACILLIN AND TAZOBACTAM [Suspect]
     Active Substance: PIPERACILLIN SODIUM\TAZOBACTAM SODIUM
     Dosage: 4.5 GRAM (EVERY 6 HOURS)
     Route: 042
     Dates: start: 20190715
  62. PIPERACILLIN AND TAZOBACTAM [Suspect]
     Active Substance: PIPERACILLIN SODIUM\TAZOBACTAM SODIUM
     Dosage: 2.5 GRAM (EVERY 6 HOURS)
     Route: 042
     Dates: start: 20190718
  63. PIPERACILLIN AND TAZOBACTAM [Suspect]
     Active Substance: PIPERACILLIN SODIUM\TAZOBACTAM SODIUM
     Dosage: 2.5 GRAM (EVERY 6 HOURS)
     Route: 042
     Dates: start: 20190719
  64. PIPERACILLIN AND TAZOBACTAM [Suspect]
     Active Substance: PIPERACILLIN SODIUM\TAZOBACTAM SODIUM
     Dosage: 2.5 GRAM (EVERY 6 HOURS)
     Route: 042
     Dates: start: 20190724
  65. OMEPRAZOLE. [Concomitant]
     Active Substance: OMEPRAZOLE
     Dosage: 40 MILLIGRAM, ONCE A DAY
     Route: 042
     Dates: start: 20190715
  66. OMEPRAZOLE. [Concomitant]
     Active Substance: OMEPRAZOLE
     Dosage: 40 MILLIGRAM, ONCE A DAY
     Route: 042
     Dates: start: 20190721
  67. HEPARIN SODIUM. [Concomitant]
     Active Substance: HEPARIN SODIUM
     Dosage: 40 MILLIGRAM, ONCE A DAY
     Route: 058
     Dates: start: 20190714
  68. HEPARIN SODIUM. [Concomitant]
     Active Substance: HEPARIN SODIUM
     Dosage: 40 MILLIGRAM, ONCE A DAY
     Route: 058
     Dates: start: 20190717
  69. HEPARIN SODIUM. [Concomitant]
     Active Substance: HEPARIN SODIUM
     Dosage: 40 MILLIGRAM, ONCE A DAY
     Route: 058
     Dates: start: 20190719, end: 20190724
  70. HEPARIN SODIUM. [Concomitant]
     Active Substance: HEPARIN SODIUM
     Dosage: 40 MILLIGRAM, ONCE A DAY
     Route: 058
     Dates: start: 20190722
  71. HEPARIN SODIUM. [Concomitant]
     Active Substance: HEPARIN SODIUM
     Dosage: 40 MILLIGRAM, ONCE A DAY
     Route: 058
     Dates: start: 20190723
  72. LIDOCAINE. [Concomitant]
     Active Substance: LIDOCAINE
     Indication: PRODUCT USED FOR UNKNOWN INDICATION
     Dosage: 10 MILLILITER, SINGLE DOSE
     Route: 058
     Dates: start: 20190719, end: 20190719
  73. METOCLOPRAMIDE. [Concomitant]
     Active Substance: METOCLOPRAMIDE
     Dosage: 10 MILLIGRAM, 3 TIMES A DAY
     Route: 042
     Dates: start: 20190724
  74. PIPERACILLIN AND TAZOBACTAM [Suspect]
     Active Substance: PIPERACILLIN SODIUM\TAZOBACTAM SODIUM
     Dosage: 4.5 GRAM (EVERY 6 HOURS)
     Route: 042
     Dates: start: 20190713
  75. PIPERACILLIN AND TAZOBACTAM [Suspect]
     Active Substance: PIPERACILLIN SODIUM\TAZOBACTAM SODIUM
     Dosage: 4.5 GRAM (EVERY 6 HOURS)
     Route: 042
     Dates: start: 20190714
  76. PIPERACILLIN AND TAZOBACTAM [Suspect]
     Active Substance: PIPERACILLIN SODIUM\TAZOBACTAM SODIUM
     Dosage: 4.5 GRAM (EVERY 6 HOURS)
     Route: 042
     Dates: start: 20190716
  77. PIPERACILLIN AND TAZOBACTAM [Suspect]
     Active Substance: PIPERACILLIN SODIUM\TAZOBACTAM SODIUM
     Dosage: 2.5 GRAM (EVERY 6 HOURS)
     Route: 042
     Dates: start: 20190720
  78. PIPERACILLIN AND TAZOBACTAM [Suspect]
     Active Substance: PIPERACILLIN SODIUM\TAZOBACTAM SODIUM
     Dosage: 2.5 GRAM (EVERY 6 HOURS)
     Route: 042
     Dates: start: 20190722
  79. PIPERACILLIN AND TAZOBACTAM [Suspect]
     Active Substance: PIPERACILLIN SODIUM\TAZOBACTAM SODIUM
     Dosage: 2.5 GRAM (EVERY 6 HOURS)
     Route: 042
     Dates: start: 20190723
  80. PIPERACILLIN AND TAZOBACTAM [Suspect]
     Active Substance: PIPERACILLIN SODIUM\TAZOBACTAM SODIUM
     Dosage: 2.5 GRAM (EVERY 6 HOURS)
     Route: 042
     Dates: start: 20190724
  81. PIPERACILLIN AND TAZOBACTAM [Suspect]
     Active Substance: PIPERACILLIN SODIUM\TAZOBACTAM SODIUM
     Dosage: 2.5 GRAM (EVERY 6 HOURS)
     Route: 042
     Dates: start: 20190725, end: 20190725
  82. MIDAZOLAM [Concomitant]
     Active Substance: MIDAZOLAM HYDROCHLORIDE
     Dosage: 150 MILLIGRAM, TWO TIMES A DAY
     Route: 042
     Dates: start: 20190717, end: 20190717
  83. MIDAZOLAM [Concomitant]
     Active Substance: MIDAZOLAM HYDROCHLORIDE
     Dosage: 150 MILLIGRAM, 3 TIMES A DAY
     Route: 042
     Dates: start: 20190719, end: 20190721
  84. ROCURONIUM BROMIDE. [Concomitant]
     Active Substance: ROCURONIUM BROMIDE
     Indication: PRODUCT USED FOR UNKNOWN INDICATION
     Dosage: 5 MILLILITER, SINGLE DOSE
     Route: 042
     Dates: start: 20190712, end: 20190712
  85. OMEPRAZOLE. [Concomitant]
     Active Substance: OMEPRAZOLE
     Dosage: 40 MILLIGRAM, ONCE A DAY
     Route: 042
     Dates: start: 20190713
  86. OMEPRAZOLE. [Concomitant]
     Active Substance: OMEPRAZOLE
     Dosage: 40 MILLIGRAM, ONCE A DAY
     Route: 042
     Dates: start: 20190718
  87. HEPARIN SODIUM. [Concomitant]
     Active Substance: HEPARIN SODIUM
     Indication: PRODUCT USED FOR UNKNOWN INDICATION
     Dosage: 40 MILLIGRAM, ONCE A DAY
     Route: 058
     Dates: start: 20190712, end: 20190714
  88. FUROSEMIDE. [Concomitant]
     Active Substance: FUROSEMIDE
     Dosage: 10 MILLIGRAM, ONCE A DAY
     Route: 042
     Dates: start: 20190718
  89. METOCLOPRAMIDE. [Concomitant]
     Active Substance: METOCLOPRAMIDE
     Dosage: 10 MILLIGRAM, 3 TIMES A DAY
     Route: 042
     Dates: start: 20190723
  90. METOCLOPRAMIDE. [Concomitant]
     Active Substance: METOCLOPRAMIDE
     Dosage: 10 MILLIGRAM, 3 TIMES A DAY
     Route: 042
     Dates: start: 20190723
  91. METOCLOPRAMIDE. [Concomitant]
     Active Substance: METOCLOPRAMIDE
     Dosage: 10 MILLIGRAM, 3 TIMES A DAY
     Route: 042
     Dates: start: 20190725
  92. METOCLOPRAMIDE. [Concomitant]
     Active Substance: METOCLOPRAMIDE
     Dosage: 10 MILLIGRAM, 3 TIMES A DAY
     Route: 042
     Dates: start: 20190725
  93. DEXMEDETOMIDINE. [Concomitant]
     Active Substance: DEXMEDETOMIDINE
     Dosage: 400 MICROGRAM, TWO TIMES A DAY
     Route: 042
     Dates: start: 20190723
  94. PIPERACILLIN AND TAZOBACTAM [Suspect]
     Active Substance: PIPERACILLIN SODIUM\TAZOBACTAM SODIUM
     Dosage: 4.5 GRAM (EVERY 6 HOURS)
     Route: 042
     Dates: start: 20190714
  95. PIPERACILLIN AND TAZOBACTAM [Suspect]
     Active Substance: PIPERACILLIN SODIUM\TAZOBACTAM SODIUM
     Dosage: 2.5 GRAM (EVERY 6 HOURS)
     Route: 042
     Dates: start: 20190719
  96. PIPERACILLIN AND TAZOBACTAM [Suspect]
     Active Substance: PIPERACILLIN SODIUM\TAZOBACTAM SODIUM
     Dosage: 2.5 GRAM (EVERY 6 HOURS)
     Route: 042
     Dates: start: 20190721
  97. PIPERACILLIN AND TAZOBACTAM [Suspect]
     Active Substance: PIPERACILLIN SODIUM\TAZOBACTAM SODIUM
     Dosage: 2.5 GRAM (EVERY 6 HOURS)
     Route: 042
     Dates: start: 20190722
  98. PIPERACILLIN AND TAZOBACTAM [Suspect]
     Active Substance: PIPERACILLIN SODIUM\TAZOBACTAM SODIUM
     Dosage: 2.5 GRAM (EVERY 6 HOURS)
     Route: 042
     Dates: start: 20190722
  99. PIPERACILLIN AND TAZOBACTAM [Suspect]
     Active Substance: PIPERACILLIN SODIUM\TAZOBACTAM SODIUM
     Dosage: 2.5 GRAM (EVERY 6 HOURS)
     Route: 042
     Dates: start: 20190723
  100. MIDAZOLAM [Concomitant]
     Active Substance: MIDAZOLAM HYDROCHLORIDE
     Dosage: 10 MILLIGRAM, SINGLE DOSE
     Route: 042
     Dates: start: 20190713, end: 20190713
  101. MIDAZOLAM [Concomitant]
     Active Substance: MIDAZOLAM HYDROCHLORIDE
     Dosage: 150 MILLIGRAM, 3 TIMES A DAY
     Route: 042
     Dates: start: 20190722
  102. ROCURONIUM BROMIDE. [Concomitant]
     Active Substance: ROCURONIUM BROMIDE
     Dosage: 5 MILLILITER, SINGLE DOSE
     Route: 042
     Dates: start: 20190718, end: 20190718
  103. HEPARIN SODIUM. [Concomitant]
     Active Substance: HEPARIN SODIUM
     Dosage: 40 MILLIGRAM, ONCE A DAY
     Route: 058
     Dates: start: 20190726, end: 20190728
  104. DOPAMINE [Concomitant]
     Active Substance: DOPAMINE HYDROCHLORIDE
     Indication: PRODUCT USED FOR UNKNOWN INDICATION
     Dosage: 100 MILLIGRAM, SINGLE DOSE
     Route: 042
     Dates: start: 20190719, end: 20190719
  105. METOCLOPRAMIDE. [Concomitant]
     Active Substance: METOCLOPRAMIDE
     Indication: PRODUCT USED FOR UNKNOWN INDICATION
     Dosage: 10 MILLIGRAM, 3 TIMES A DAY
     Route: 042
     Dates: start: 20190722
  106. METOCLOPRAMIDE. [Concomitant]
     Active Substance: METOCLOPRAMIDE
     Dosage: 10 MILLIGRAM, 3 TIMES A DAY
     Route: 042
     Dates: start: 20190723
  107. ACETAMINOPHEN. [Concomitant]
     Active Substance: ACETAMINOPHEN
     Dosage: 1 GRAM, FOUR TIMES/DAY
     Route: 048
     Dates: start: 20190725, end: 20190728
  108. PIPERACILLIN AND TAZOBACTAM [Suspect]
     Active Substance: PIPERACILLIN SODIUM\TAZOBACTAM SODIUM
     Indication: INFECTION
     Dosage: 4.5 GRAM (EVERY 6 HOURS)
     Route: 042
     Dates: start: 20190713
  109. PIPERACILLIN AND TAZOBACTAM [Suspect]
     Active Substance: PIPERACILLIN SODIUM\TAZOBACTAM SODIUM
     Dosage: 2.5 GRAM (EVERY 6 HOURS)
     Route: 042
     Dates: start: 20190718
  110. PIPERACILLIN AND TAZOBACTAM [Suspect]
     Active Substance: PIPERACILLIN SODIUM\TAZOBACTAM SODIUM
     Dosage: 2.5 GRAM (EVERY 6 HOURS)
     Route: 042
     Dates: start: 20190720
  111. PIPERACILLIN AND TAZOBACTAM [Suspect]
     Active Substance: PIPERACILLIN SODIUM\TAZOBACTAM SODIUM
     Dosage: 2.5 GRAM (EVERY 6 HOURS)
     Route: 042
     Dates: start: 20190721
  112. FENTANYL. [Concomitant]
     Active Substance: FENTANYL
     Indication: PRODUCT USED FOR UNKNOWN INDICATION
     Dosage: 2 MILLILITER, SINGLE DOSE
     Route: 042
     Dates: start: 20190712, end: 20190712
  113. OMEPRAZOLE. [Concomitant]
     Active Substance: OMEPRAZOLE
     Indication: PRODUCT USED FOR UNKNOWN INDICATION
     Dosage: 40 MILLIGRAM, ONCE A DAY
     Route: 042
     Dates: start: 20190712, end: 20190728
  114. OMEPRAZOLE. [Concomitant]
     Active Substance: OMEPRAZOLE
     Dosage: 40 MILLIGRAM, ONCE A DAY
     Route: 042
     Dates: start: 20190720
  115. OMEPRAZOLE. [Concomitant]
     Active Substance: OMEPRAZOLE
     Dosage: 40 MILLIGRAM, ONCE A DAY
     Route: 042
     Dates: start: 20190722

REACTIONS (2)
  - Renal failure [Unknown]
  - Treatment failure [Unknown]
